FAERS Safety Report 23050021 (Version 5)
Quarter: 2024Q1

REPORT INFORMATION
  Report Type: Report from Study
  Country: ES (occurrence: ES)
  Receive Date: 20231010
  Receipt Date: 20240121
  Transmission Date: 20240409
  Serious: Yes (Hospitalization, Other)
  Sender: FDA-Public Use
  Company Number: ES-ABBVIE-5442323

PATIENT
  Sex: Female

DRUGS (3)
  1. CARBIDOPA\LEVODOPA [Suspect]
     Active Substance: CARBIDOPA\LEVODOPA
     Indication: Parkinson^s disease
     Dosage: END DATE- 2023
     Route: 050
     Dates: start: 20230605
  2. CARBIDOPA\LEVODOPA [Suspect]
     Active Substance: CARBIDOPA\LEVODOPA
     Dosage: START DATE- 2023
     Route: 050
  3. CARBIDOPA\LEVODOPA [Suspect]
     Active Substance: CARBIDOPA\LEVODOPA
     Dosage: FIRST ADMIN DATE- 2023
     Route: 050

REACTIONS (10)
  - Haemorrhagic stroke [Recovered/Resolved with Sequelae]
  - Musculoskeletal stiffness [Recovered/Resolved]
  - Eye movement disorder [Unknown]
  - Condition aggravated [Unknown]
  - Eye disorder [Unknown]
  - Pyrexia [Recovered/Resolved]
  - Abdominal pain [Recovered/Resolved]
  - Unevaluable event [Unknown]
  - Freezing phenomenon [Unknown]
  - Groin pain [Recovered/Resolved]

NARRATIVE: CASE EVENT DATE: 20230101
